FAERS Safety Report 7332451-X (Version None)
Quarter: 2011Q1

REPORT INFORMATION
  Report Type: 
  Country: None (occurrence: None)
  Receive Date: 20110304
  Receipt Date: 20110215
  Transmission Date: 20110831
  Serious: Yes (Other)
  Sender: FDA-Public Use
  Company Number: US-PFIZER INC-2011042906

PATIENT
  Sex: Female

DRUGS (3)
  1. ENBREL [Suspect]
     Indication: PSORIASIS
     Dosage: UNK
  2. ENBREL [Suspect]
     Indication: PSORIATIC ARTHROPATHY
  3. CELEBREX [Suspect]
     Indication: ADENOMATOUS POLYPOSIS COLI
     Dosage: UNK

REACTIONS (2)
  - PSORIATIC ARTHROPATHY [None]
  - PULMONARY EMBOLISM [None]
